FAERS Safety Report 6616985-9 (Version None)
Quarter: 2010Q1

REPORT INFORMATION
  Report Type: 
  Country: None (occurrence: None)
  Receive Date: 20100301
  Receipt Date: 20100218
  Transmission Date: 20100710
  Serious: Yes (Other)
  Sender: FDA-Public Use
  Company Number: 512795

PATIENT
  Age: 69 Year
  Sex: Male

DRUGS (5)
  1. EPIRUBICIN HYDROCHLORIDE [Suspect]
     Indication: DIFFUSE LARGE B-CELL LYMPHOMA STAGE II
     Dates: start: 20080101, end: 20080611
  2. (RITUXIMAB) [Suspect]
     Indication: DIFFUSE LARGE B-CELL LYMPHOMA STAGE II
     Dosage: 600 MG
     Dates: start: 20080101, end: 20080601
  3. CYCLOPHOSPHAMIDE [Suspect]
     Indication: DIFFUSE LARGE B-CELL LYMPHOMA STAGE II
     Dates: start: 20080101, end: 20080611
  4. ONCOVIN [Suspect]
     Indication: DIFFUSE LARGE B-CELL LYMPHOMA STAGE II
     Dates: start: 20080101, end: 20080611
  5. PREDNISOLONE [Suspect]
     Indication: DIFFUSE LARGE B-CELL LYMPHOMA STAGE II
     Dates: start: 20080101, end: 20080611

REACTIONS (4)
  - DISEASE RECURRENCE [None]
  - HEPATITIS ACUTE [None]
  - HEPATITIS B [None]
  - HEPATOCELLULAR INJURY [None]
